FAERS Safety Report 20093910 (Version 3)
Quarter: 2022Q3

REPORT INFORMATION
  Report Type: Report from Study
  Country: BR (occurrence: BR)
  Receive Date: 20211121
  Receipt Date: 20220718
  Transmission Date: 20221027
  Serious: Yes (Hospitalization, Other)
  Sender: FDA-Public Use
  Company Number: BR-ABBVIE-21K-020-4113121-00

PATIENT
  Age: 72 Year
  Sex: Male
  Weight: 70 kg

DRUGS (5)
  1. RINVOQ [Suspect]
     Active Substance: UPADACITINIB
     Indication: Rheumatoid arthritis
     Route: 048
     Dates: end: 2021
  2. RINVOQ [Suspect]
     Active Substance: UPADACITINIB
     Route: 048
     Dates: start: 20211112
  3. RINVOQ [Suspect]
     Active Substance: UPADACITINIB
     Dosage: 1 TABLET, AT NIGHT
     Route: 048
  4. RIVOTRIL [Concomitant]
     Active Substance: CLONAZEPAM
     Indication: Sleep disorder therapy
     Dosage: ONCE A DAY
     Route: 048
  5. PREGABALIN [Concomitant]
     Active Substance: PREGABALIN
     Indication: Sleep disorder therapy
     Dosage: ONCE A DAY

REACTIONS (16)
  - Prostatic disorder [Not Recovered/Not Resolved]
  - Suture removal [Recovering/Resolving]
  - Hospitalisation [Unknown]
  - Umbilical hernia [Unknown]
  - Therapeutic response unexpected [Unknown]
  - Arthralgia [Recovering/Resolving]
  - Pre-existing condition improved [Unknown]
  - Arthralgia [Recovered/Resolved]
  - Abdominal pain [Unknown]
  - Urinary incontinence [Recovering/Resolving]
  - Swelling [Unknown]
  - Feeding disorder [Unknown]
  - Abdominal pain [Unknown]
  - Vomiting [Unknown]
  - Suture rupture [Unknown]
  - Abdominal injury [Unknown]

NARRATIVE: CASE EVENT DATE: 20220401
